FAERS Safety Report 6902185-1 (Version None)
Quarter: 2010Q3

REPORT INFORMATION
  Report Type: 
  Country: None (occurrence: None)
  Receive Date: 20100803
  Receipt Date: 20080501
  Transmission Date: 20110219
  Serious: No
  Sender: FDA-Public Use
  Company Number: US-PFIZER INC-2008038427

PATIENT
  Sex: Female

DRUGS (8)
  1. LYRICA [Suspect]
     Indication: FIBROMYALGIA
     Route: 048
     Dates: start: 20080401, end: 20080401
  2. METFORMIN HCL [Concomitant]
  3. PROPRANOLOL [Concomitant]
  4. TRICOR [Concomitant]
  5. LUNESTA [Concomitant]
  6. ZOLOFT [Concomitant]
  7. ANTIINFLAMMATORY/ANTIRHEUMATIC PRODUCTS [Concomitant]
  8. ALL OTHER THERAPEUTIC PRODUCTS [Concomitant]

REACTIONS (2)
  - DRUG INEFFECTIVE [None]
  - INAPPROPRIATE SCHEDULE OF DRUG ADMINISTRATION [None]
